FAERS Safety Report 14826450 (Version 1)
Quarter: 2018Q2

REPORT INFORMATION
  Report Type: Spontaneous
  Country: US (occurrence: US)
  Receive Date: 20180404
  Receipt Date: 20180404
  Transmission Date: 20180711
  Serious: No
  Sender: FDA-Public Use
  Company Number: None

PATIENT
  Sex: Male

DRUGS (4)
  1. ATORVASTATIN TABLET [Suspect]
     Active Substance: ATORVASTATIN
  2. PRAVASTATIN TABLET [Concomitant]
     Active Substance: PRAVASTATIN
  3. SIMVASTATIN TABLET [Suspect]
     Active Substance: SIMVASTATIN
  4. LOVASTATIN TABLET [Concomitant]

REACTIONS (1)
  - Drug ineffective [None]
